FAERS Safety Report 6507507-1 (Version None)
Quarter: 2009Q4

REPORT INFORMATION
  Report Type: 
  Country: None (occurrence: None)
  Receive Date: 20091201
  Receipt Date: 20090526
  Transmission Date: 20100525
  Serious: Yes (Hospitalization)
  Sender: FDA-Public Use
  Company Number: 2009-197751-NL

PATIENT
  Age: 30 Year
  Sex: Female
  Weight: 78.9 kg

DRUGS (1)
  1. NUVARING [Suspect]
     Indication: CONTRACEPTION

REACTIONS (1)
  - CEREBROVASCULAR ACCIDENT [None]
